FAERS Safety Report 4967540-8 (Version None)
Quarter: 2006Q2

REPORT INFORMATION
  Report Type: 
  Country: None (occurrence: None)
  Receive Date: 20060410
  Receipt Date: 20060315
  Transmission Date: 20061013
  Serious: Yes (Hospitalization)
  Sender: FDA-Public Use
  Company Number: ES-GLAXOSMITHKLINE-B0416640A

PATIENT
  Age: 34 Year
  Sex: Female
  Weight: 53 kg

DRUGS (4)
  1. TOPOTECAN HYDROCHLORIDE [Suspect]
     Indication: CERVIX CARCINOMA
     Dosage: 3MGM2 SEE DOSAGE TEXT
     Route: 042
     Dates: start: 20051118, end: 20060116
  2. PREDNISONE [Concomitant]
  3. IBUPROFEN [Concomitant]
  4. OMEPRAZOLE [Concomitant]

REACTIONS (3)
  - DYSPNOEA [None]
  - ERYTHEMA [None]
  - OEDEMA [None]
